FAERS Safety Report 19007918 (Version 1)
Quarter: 2021Q1

REPORT INFORMATION
  Report Type: Spontaneous
  Country: IE (occurrence: IE)
  Receive Date: 20210315
  Receipt Date: 20210315
  Transmission Date: 20210420
  Serious: Yes (Death, Life-Threatening, Hospitalization, Other)
  Sender: FDA-Public Use
  Company Number: IE-BIOVITRUM-2021IE2593

PATIENT
  Age: 19 Year
  Sex: Female
  Weight: 60 kg

DRUGS (2)
  1. PREDNISOLONE (GENERIC) [Concomitant]
     Indication: STILL^S DISEASE
     Dosage: 20MG REDUCING DOSE
     Dates: start: 20201207, end: 20210211
  2. KINERET [Suspect]
     Active Substance: ANAKINRA
     Indication: STILL^S DISEASE
     Dosage: DAILY DOSE: 100MG
     Route: 058
     Dates: start: 20210114, end: 20210204

REACTIONS (1)
  - Hepatotoxicity [Fatal]

NARRATIVE: CASE EVENT DATE: 20210201
